APPROVED DRUG PRODUCT: FLUOROURACIL
Active Ingredient: FLUOROURACIL
Strength: 2.5GM/50ML (50MG/ML)
Dosage Form/Route: INJECTABLE;INJECTION
Application: A217295 | Product #001 | TE Code: AP
Applicant: ALEMBIC PHARMACEUTICALS LTD
Approved: Mar 3, 2023 | RLD: No | RS: Yes | Type: RX